FAERS Safety Report 7888393-4 (Version None)
Quarter: 2011Q4

REPORT INFORMATION
  Report Type: 
  Country: None (occurrence: None)
  Receive Date: 20111103
  Receipt Date: 20111024
  Transmission Date: 20120403
  Serious: Yes (Other)
  Sender: FDA-Public Use
  Company Number: PHHY2011CA95743

PATIENT
  Sex: Male

DRUGS (2)
  1. GLEEVEC [Suspect]
     Dosage: 300 MG, DAILY
     Dates: start: 20110901
  2. GLEEVEC [Suspect]
     Dosage: 400 MG, DAILY
     Dates: start: 20110601, end: 20110831

REACTIONS (12)
  - TEARFULNESS [None]
  - FATIGUE [None]
  - NAUSEA [None]
  - PEAU D'ORANGE [None]
  - PALLOR [None]
  - ANXIETY [None]
  - MUSCLE SPASMS [None]
  - EYE SWELLING [None]
  - AMNESIA [None]
  - DISORIENTATION [None]
  - HYPOAESTHESIA ORAL [None]
  - HEADACHE [None]
